FAERS Safety Report 25354585 (Version 1)
Quarter: 2025Q2

REPORT INFORMATION
  Report Type: Report from Study
  Country: US (occurrence: US)
  Receive Date: 20250524
  Receipt Date: 20250524
  Transmission Date: 20250717
  Serious: Yes (Other)
  Sender: ABBVIE
  Company Number: US-ABBVIE-6289874

PATIENT
  Age: 69 Year
  Sex: Female

DRUGS (1)
  1. RINVOQ [Suspect]
     Active Substance: UPADACITINIB
     Indication: Dermatitis atopic
     Route: 048
     Dates: start: 20241023

REACTIONS (5)
  - Scoliosis [Not Recovered/Not Resolved]
  - Contusion [Recovering/Resolving]
  - Foot fracture [Recovering/Resolving]
  - Pain [Unknown]
  - Injection [Recovered/Resolved]

NARRATIVE: CASE EVENT DATE: 20250101
